FAERS Safety Report 9240869 (Version 1)
Quarter: 2013Q2

REPORT INFORMATION
  Report Type: Spontaneous
  Country: US (occurrence: None)
  Receive Date: 20130418
  Receipt Date: 20130418
  Transmission Date: 20140414
  Serious: Yes (Other)
  Sender: FDA-Public Use
  Company Number: None

PATIENT
  Age: 32 Year
  Sex: Female
  Weight: 61.24 kg

DRUGS (2)
  1. ADDERALL [Suspect]
     Dosage: 30 1
     Route: 048
  2. ADDERALL XR [Suspect]
     Dosage: 30  1 PO
     Route: 048

REACTIONS (1)
  - Product substitution issue [None]
